FAERS Safety Report 24563661 (Version 1)
Quarter: 2024Q4

REPORT INFORMATION
  Report Type: Spontaneous
  Country: US (occurrence: US)
  Receive Date: 20241030
  Receipt Date: 20241030
  Transmission Date: 20250114
  Serious: Yes (Death, Other)
  Sender: ZYDUS PHARM
  Company Number: US-CADILA HEALTHCARE LIMITED-US-ZYDUS-114095

PATIENT

DRUGS (1)
  1. ALLOPURINOL [Suspect]
     Active Substance: ALLOPURINOL
     Indication: Product used for unknown indication
     Dosage: UNK
     Route: 065

REACTIONS (4)
  - Encephalopathy [Fatal]
  - Renal impairment [Unknown]
  - Electrolyte imbalance [Fatal]
  - Drug reaction with eosinophilia and systemic symptoms [Unknown]
